FAERS Safety Report 9470561 (Version 1)
Quarter: 2013Q3

REPORT INFORMATION
  Report Type: Spontaneous
  Country: FR (occurrence: FR)
  Receive Date: 20130822
  Receipt Date: 20130822
  Transmission Date: 20140515
  Serious: Yes (Hospitalization)
  Sender: FDA-Public Use
  Company Number: FR-PFIZER INC-2013239821

PATIENT
  Age: 54 Year
  Sex: Female

DRUGS (2)
  1. ADVIL [Suspect]
     Indication: TOOTH ABSCESS
     Dosage: 200 MG, 1X/DAY
     Route: 048
     Dates: start: 20130707, end: 20130707
  2. AMOXICILLIN [Suspect]
     Indication: TOOTH ABSCESS
     Dosage: 1 G, 3X/DAY
     Route: 048
     Dates: start: 20130702, end: 20130707

REACTIONS (1)
  - Rash maculo-papular [Recovered/Resolved]
